FAERS Safety Report 10613432 (Version 2)
Quarter: 2015Q2

REPORT INFORMATION
  Report Type: Report from Study
  Country: US (occurrence: US)
  Receive Date: 20141128
  Receipt Date: 20150422
  Transmission Date: 20150821
  Serious: Yes (Hospitalization)
  Sender: FDA-Public Use
  Company Number: US-AMGEN-USASP2014091403

PATIENT
  Age: 66 Year
  Sex: Female

DRUGS (14)
  1. AZULFIDINE [Concomitant]
     Active Substance: SULFASALAZINE
     Dosage: 500 MG, UNK
  2. METOPROLOL [Concomitant]
     Active Substance: METOPROLOL
  3. ASPIRIN                            /00002701/ [Concomitant]
     Active Substance: ASPIRIN
  4. VOLTAREN [Concomitant]
     Active Substance: DICLOFENAC SODIUM
  5. CALCIUM [Concomitant]
     Active Substance: CALCIUM
  6. IBUPROFEN. [Concomitant]
     Active Substance: IBUPROFEN
  7. DEXILANT [Concomitant]
     Active Substance: DEXLANSOPRAZOLE
  8. PLAQUENIL [Concomitant]
     Active Substance: HYDROXYCHLOROQUINE SULFATE
  9. PROLIA [Suspect]
     Active Substance: DENOSUMAB
     Indication: OSTEOPOROSIS POSTMENOPAUSAL
     Dosage: 60 MG, Q6MO
     Route: 065
     Dates: start: 20141021
  10. IRON [Concomitant]
     Active Substance: IRON
  11. PAMELOR [Concomitant]
     Active Substance: NORTRIPTYLINE HYDROCHLORIDE
  12. TRAMADOL [Concomitant]
     Active Substance: TRAMADOL
  13. AMLODIPINE [Concomitant]
     Active Substance: AMLODIPINE BESYLATE
  14. VITAMIN D                          /00107901/ [Concomitant]
     Active Substance: ERGOCALCIFEROL

REACTIONS (4)
  - Erythema [Unknown]
  - Local swelling [Unknown]
  - Skin exfoliation [Unknown]
  - Swelling face [Unknown]
